FAERS Safety Report 5085339-1 (Version None)
Quarter: 2006Q3

REPORT INFORMATION
  Report Type: 
  Country: None (occurrence: None)
  Receive Date: 20060822
  Receipt Date: 20060623
  Transmission Date: 20061208
  Serious: Yes (Hospitalization, Other)
  Sender: FDA-Public Use
  Company Number: US-AVENTIS-200615453US

PATIENT
  Sex: Male

DRUGS (9)
  1. KETEK [Suspect]
     Indication: PNEUMONIA
     Dates: start: 20060611, end: 20060621
  2. LIPITOR [Concomitant]
     Dosage: DOSE: UNK
  3. AMBIEN [Concomitant]
     Dosage: DOSE: UNK
  4. KLONOPIN [Concomitant]
     Dosage: DOSE: UNK
  5. COZAAR [Concomitant]
     Dosage: DOSE: UNK
  6. OMEPRAZOLE [Concomitant]
     Dosage: DOSE: UNK
  7. ATENOLOL [Concomitant]
     Dosage: DOSE: UNK
  8. ASPIRIN [Concomitant]
     Dosage: DOSE: UNK
  9. MULTIVITAMINS, PLAIN [Concomitant]
     Dosage: DOSE: UNK

REACTIONS (14)
  - ALANINE AMINOTRANSFERASE INCREASED [None]
  - ASPARTATE AMINOTRANSFERASE INCREASED [None]
  - BLOOD ALKALINE PHOSPHATASE INCREASED [None]
  - BREATH SOUNDS ABNORMAL [None]
  - COUGH [None]
  - DROOLING [None]
  - DYSPNOEA [None]
  - LIVER FUNCTION TEST ABNORMAL [None]
  - LUNG INFILTRATION [None]
  - PLEURAL EFFUSION [None]
  - PNEUMONIA [None]
  - PNEUMONIA ASPIRATION [None]
  - TREMOR [None]
  - UNEVALUABLE EVENT [None]
